FAERS Safety Report 5977377-9 (Version None)
Quarter: 2008Q4

REPORT INFORMATION
  Report Type: 
  Country: None (occurrence: None)
  Receive Date: 20081203
  Receipt Date: 20081126
  Transmission Date: 20090506
  Serious: Yes (Disabling)
  Sender: FDA-Public Use
  Company Number: PHHY2008FR29708

PATIENT
  Sex: Female

DRUGS (1)
  1. ZOMETA [Suspect]
     Indication: MULTIPLE MYELOMA
     Dosage: 4 MG EVERY 3 WEEKS
     Dates: start: 20060601, end: 20080101

REACTIONS (4)
  - DENTAL CARE [None]
  - OEDEMA [None]
  - OSTEONECROSIS [None]
  - PAIN IN JAW [None]
